FAERS Safety Report 25074595 (Version 2)
Quarter: 2025Q1

REPORT INFORMATION
  Report Type: Spontaneous
  Country: US (occurrence: US)
  Receive Date: 20250313
  Receipt Date: 20250317
  Transmission Date: 20250409
  Serious: Yes (Death, Other)
  Sender: DR REDDYS
  Company Number: None

PATIENT
  Age: 61 Year
  Sex: Male

DRUGS (14)
  1. BENDAMUSTINE [Suspect]
     Active Substance: BENDAMUSTINE
     Indication: Cutaneous B-cell lymphoma
     Dates: start: 2023, end: 2023
  2. BENDAMUSTINE [Suspect]
     Active Substance: BENDAMUSTINE
     Indication: Marginal zone lymphoma
  3. DOXORUBICIN [Suspect]
     Active Substance: DOXORUBICIN
     Indication: Cutaneous B-cell lymphoma
     Dates: start: 2023, end: 2023
  4. DOXORUBICIN [Suspect]
     Active Substance: DOXORUBICIN
     Indication: Marginal zone lymphoma
  5. CYCLOPHOSPHAMIDE [Suspect]
     Active Substance: CYCLOPHOSPHAMIDE
     Indication: Cutaneous B-cell lymphoma
     Dates: start: 2023, end: 2023
  6. CYCLOPHOSPHAMIDE [Suspect]
     Active Substance: CYCLOPHOSPHAMIDE
     Indication: Marginal zone lymphoma
  7. BORTEZOMIB [Suspect]
     Active Substance: BORTEZOMIB
     Indication: Cutaneous B-cell lymphoma
     Dates: start: 2023, end: 2023
  8. BORTEZOMIB [Suspect]
     Active Substance: BORTEZOMIB
     Indication: Marginal zone lymphoma
  9. ETOPOSIDE PHOSPHATE [Suspect]
     Active Substance: ETOPOSIDE PHOSPHATE
     Indication: Cutaneous B-cell lymphoma
     Dates: start: 2023, end: 2023
  10. ETOPOSIDE PHOSPHATE [Suspect]
     Active Substance: ETOPOSIDE PHOSPHATE
     Indication: Marginal zone lymphoma
  11. VINCRISTINE SULFATE [Suspect]
     Active Substance: VINCRISTINE SULFATE
     Indication: Cutaneous B-cell lymphoma
     Dates: start: 2023, end: 2023
  12. VINCRISTINE SULFATE [Suspect]
     Active Substance: VINCRISTINE SULFATE
     Indication: Marginal zone lymphoma
  13. OBINUTUZUMAB [Suspect]
     Active Substance: OBINUTUZUMAB
     Indication: Cutaneous B-cell lymphoma
     Dates: start: 2023, end: 2023
  14. OBINUTUZUMAB [Suspect]
     Active Substance: OBINUTUZUMAB
     Indication: Marginal zone lymphoma

REACTIONS (5)
  - Malignant neoplasm progression [Fatal]
  - Drug ineffective [Fatal]
  - Drug intolerance [Unknown]
  - Toxicity to various agents [Unknown]
  - Product use in unapproved indication [Unknown]

NARRATIVE: CASE EVENT DATE: 20230101
